FAERS Safety Report 24443690 (Version 2)
Quarter: 2024Q4

REPORT INFORMATION
  Report Type: Report from Study
  Country: US (occurrence: US)
  Receive Date: 20241016
  Receipt Date: 20241017
  Transmission Date: 20250115
  Serious: No
  Sender: ROCHE
  Company Number: US-ROCHE-1864715

PATIENT
  Age: 64 Year
  Sex: Female
  Weight: 72.12 kg

DRUGS (7)
  1. RITUXAN [Suspect]
     Active Substance: RITUXIMAB
     Indication: Nephrotic syndrome
     Route: 041
  2. RITUXAN [Suspect]
     Active Substance: RITUXIMAB
     Indication: White blood cell count increased
     Dosage: FOR 4 WEEKS, DATE OF TREATMENT: 07/DEC/2016, 14/DEC/2016, 23/NOV/2016, 30/NOV/2016
     Route: 042
     Dates: start: 2016
  3. RITUXAN [Suspect]
     Active Substance: RITUXIMAB
     Indication: Proteinuria
     Dosage: 1 INFUSION OF 500 MG AND 2 INFUSION OF 100 MG FOR 4 WEEKS.
     Route: 042
  4. RITUXAN [Suspect]
     Active Substance: RITUXIMAB
     Indication: Sjogren^s syndrome
     Route: 042
     Dates: start: 2017
  5. RITUXAN [Suspect]
     Active Substance: RITUXIMAB
     Dosage: DAY 1 AND DAY 15. ANTICIPATED DATE OF TREATMENT: 02/APR/2024.
     Route: 042
  6. HYDROXYCHLOROQUINE [Concomitant]
     Active Substance: HYDROXYCHLOROQUINE
  7. PREDNISONE [Concomitant]
     Active Substance: PREDNISONE

REACTIONS (12)
  - Off label use [Unknown]
  - Proteinuria [Not Recovered/Not Resolved]
  - Protein total increased [Recovered/Resolved]
  - Malaise [Unknown]
  - Sjogren^s syndrome [Unknown]
  - Memory impairment [Unknown]
  - Weight decreased [Unknown]
  - Malaise [Unknown]
  - Haemoglobin decreased [Unknown]
  - Blood glucose decreased [Unknown]
  - Infection [Unknown]
  - Blood cholesterol abnormal [Unknown]

NARRATIVE: CASE EVENT DATE: 20160101
